FAERS Safety Report 7410320-4 (Version None)
Quarter: 2011Q2

REPORT INFORMATION
  Report Type: 
  Country: None (occurrence: None)
  Receive Date: 20110412
  Receipt Date: 20110331
  Transmission Date: 20111010
  Serious: Yes (Hospitalization, Other)
  Sender: FDA-Public Use
  Company Number: PHHY2011JP27525

PATIENT
  Sex: Female

DRUGS (10)
  1. GASTER [Concomitant]
     Dosage: 20 MG
     Route: 048
     Dates: start: 20081113
  2. SIMULECT [Suspect]
     Indication: RENAL TRANSPLANT
     Dosage: 20 MG
     Route: 042
     Dates: start: 20081112, end: 20081112
  3. SANDIMMUNE [Concomitant]
     Indication: RENAL TRANSPLANT
     Dosage: 125 MG
     Route: 042
     Dates: start: 20081112, end: 20081113
  4. BAKTAR [Concomitant]
     Dosage: 1 DF
     Route: 048
     Dates: start: 20081201, end: 20110119
  5. FUNGIZONE [Concomitant]
     Dosage: 200 MG
     Route: 048
     Dates: start: 20081109, end: 20110119
  6. PROGRAF [Suspect]
     Indication: RENAL TRANSPLANT
     Dosage: 4 MG
     Route: 048
     Dates: start: 20081119
  7. SIMULECT [Suspect]
     Dosage: 20 MG
     Route: 042
     Dates: start: 20081116, end: 20081116
  8. PREDONINE [Suspect]
     Indication: RENAL TRANSPLANT
     Dosage: 50 MG
     Route: 048
     Dates: start: 20081113
  9. CELLCEPT [Suspect]
     Indication: RENAL TRANSPLANT
     Dosage: 1000 MG
     Route: 048
     Dates: start: 20081113
  10. NEORAL [Concomitant]
     Indication: RENAL TRANSPLANT
     Dosage: 50 MG
     Route: 048
     Dates: start: 20081109

REACTIONS (2)
  - HEPATIC FUNCTION ABNORMAL [None]
  - CYTOMEGALOVIRUS INFECTION [None]
